FAERS Safety Report 9695433 (Version 2)
Quarter: 2015Q3

REPORT INFORMATION
  Report Type: Report from Study
  Country: MX (occurrence: MX)
  Receive Date: 20131119
  Receipt Date: 20150721
  Transmission Date: 20151125
  Serious: Yes (Hospitalization, Other)
  Sender: FDA-Public Use
  Company Number: PHHY2013MX131021

PATIENT
  Sex: Female
  Weight: 45 kg

DRUGS (4)
  1. ACLASTA [Suspect]
     Active Substance: ZOLEDRONIC ACID
     Indication: OSTEOPOROSIS
     Dosage: 5 MG, (ANNUALLY)
     Route: 042
     Dates: start: 20081121
  2. METICORTEN [Concomitant]
     Active Substance: PREDNISONE
     Indication: ADDISON^S DISEASE
     Dosage: UNK
     Route: 065
     Dates: start: 197411
  3. CONCOR [Concomitant]
     Active Substance: BISOPROLOL FUMARATE
     Indication: HYPERTENSION
     Dosage: 2.5 MG, UNK
     Dates: start: 200811
  4. TUMS [Concomitant]
     Active Substance: CALCIUM CARBONATE
     Indication: BONE DISORDER
     Dosage: UNK
     Route: 065
     Dates: start: 200911

REACTIONS (12)
  - Blood pressure decreased [Recovered/Resolved]
  - Swelling face [Recovered/Resolved]
  - Alopecia [Recovered/Resolved]
  - Memory impairment [Not Recovered/Not Resolved]
  - Nasopharyngitis [Recovered/Resolved]
  - Syncope [Recovered/Resolved]
  - Tremor [Recovered/Resolved]
  - Diarrhoea [Recovered/Resolved]
  - Vomiting [Recovered/Resolved]
  - Hypothyroidism [Recovered/Resolved]
  - Weight decreased [Recovered/Resolved]
  - Blood pressure decreased [Recovered/Resolved]

NARRATIVE: CASE EVENT DATE: 2009
